FAERS Safety Report 4614246-0 (Version None)
Quarter: 2005Q1

REPORT INFORMATION
  Report Type: 
  Country: None (occurrence: None)
  Receive Date: 20050321
  Receipt Date: 20050311
  Transmission Date: 20050727
  Serious: Yes (Hospitalization)
  Sender: FDA-Public Use
  Company Number: FR-ABBOTT-05P-056-0294200-00

PATIENT
  Age: 45 Year
  Sex: Male
  Weight: 66 kg

DRUGS (6)
  1. NORVIR [Suspect]
     Indication: HIV INFECTION
     Route: 048
     Dates: start: 20050211, end: 20050214
  2. NORVIR [Suspect]
     Route: 048
     Dates: start: 20041125, end: 20050101
  3. FOSAMPRENAVIR [Suspect]
     Indication: HIV INFECTION
     Route: 048
     Dates: start: 20050211, end: 20050214
  4. FOSAMPRENAVIR [Suspect]
     Route: 048
     Dates: start: 20041125, end: 20050101
  5. ATAZANAVIR [Suspect]
     Indication: HIV INFECTION
     Route: 048
     Dates: start: 20050211, end: 20050214
  6. ATAZANAVIR [Suspect]
     Route: 048
     Dates: start: 20041125, end: 20050101

REACTIONS (3)
  - BLOOD ALKALINE PHOSPHATASE INCREASED [None]
  - GAMMA-GLUTAMYLTRANSFERASE INCREASED [None]
  - HEPATIC ENZYME INCREASED [None]
